FAERS Safety Report 17653901 (Version 3)
Quarter: 2020Q4

REPORT INFORMATION
  Report Type: Other
  Country: US (occurrence: US)
  Receive Date: 20200410
  Receipt Date: 20201105
  Transmission Date: 20210113
  Serious: Yes (Death)
  Sender: FDA-Public Use
  Company Number: US-AMARIN PHARMA, INC.-2020AMR000255

PATIENT
  Age: 78 Year

DRUGS (1)
  1. VASCEPA [Suspect]
     Active Substance: ICOSAPENT ETHYL
     Indication: BLOOD TRIGLYCERIDES INCREASED
     Route: 048

REACTIONS (2)
  - Sudden cardiac death [Fatal]
  - Cardiac valve disease [Fatal]

NARRATIVE: CASE EVENT DATE: 20191017
